FAERS Safety Report 4274745-0 (Version None)
Quarter: 2004Q1

REPORT INFORMATION
  Report Type: 
  Country: None (occurrence: None)
  Receive Date: 20040120
  Receipt Date: 20040120
  Transmission Date: 20041129
  Serious: Yes (Hospitalization)
  Sender: FDA-Public Use
  Company Number: None

PATIENT
  Age: 56 Year
  Sex: Female
  Weight: 72.5755 kg

DRUGS (3)
  1. GEMZAR [Suspect]
     Indication: PANCREATIC CARCINOMA
     Dosage: IV, DAYS 1 AND 8 OF 2 DAY
     Route: 042
     Dates: start: 20031117, end: 20040105
  2. XELODA [Concomitant]
  3. AUGMENTIN '125' [Concomitant]

REACTIONS (1)
  - DYSPNOEA [None]
